FAERS Safety Report 20543994 (Version 1)
Quarter: 2022Q1

REPORT INFORMATION
  Report Type: Report from Study
  Country: US (occurrence: US)
  Receive Date: 20220303
  Receipt Date: 20220303
  Transmission Date: 20220423
  Serious: Yes (Other)
  Sender: FDA-Public Use
  Company Number: US-KOREA IPSEN Pharma-2022-05082

PATIENT
  Sex: Female

DRUGS (3)
  1. SOMATULINE DEPOT [Suspect]
     Active Substance: LANREOTIDE ACETATE
     Indication: Bone neoplasm
     Dosage: 120 MG/0.5 ML
     Route: 058
     Dates: start: 201412
  2. SOMATULINE DEPOT [Suspect]
     Active Substance: LANREOTIDE ACETATE
     Indication: Neuroendocrine tumour
  3. SOMATULINE DEPOT [Suspect]
     Active Substance: LANREOTIDE ACETATE
     Indication: Off label use

REACTIONS (9)
  - Disease progression [Recovering/Resolving]
  - Bronchopulmonary aspergillosis [Recovering/Resolving]
  - COVID-19 [Recovering/Resolving]
  - Lip blister [Recovering/Resolving]
  - Lip disorder [Recovering/Resolving]
  - Dizziness [Recovering/Resolving]
  - Fall [Recovering/Resolving]
  - Eating disorder [Recovering/Resolving]
  - Off label use [Unknown]
